FAERS Safety Report 22173994 (Version 3)
Quarter: 2023Q2

REPORT INFORMATION
  Report Type: Other
  Country: US (occurrence: None)
  Receive Date: 20230404
  Receipt Date: 20230424
  Transmission Date: 20230722
  Serious: Yes (Hospitalization)
  Sender: FDA-Public Use
  Company Number: US-ROCHE-3321267

PATIENT
  Age: 7 Year
  Sex: Female
  Weight: 13.82 kg

DRUGS (2)
  1. EVRYSDI [Suspect]
     Active Substance: RISDIPLAM
     Indication: Spinal muscular atrophy
     Dosage: STRENGTH 0.75 MG/ML 80 ML
     Route: 048
     Dates: start: 20210513
  2. EVRYSDI [Suspect]
     Active Substance: RISDIPLAM
     Dosage: STRENGTH 0.75 MG/ML 80 ML
     Route: 048

REACTIONS (1)
  - Pneumonia [Unknown]

NARRATIVE: CASE EVENT DATE: 20230326
